FAERS Safety Report 11114994 (Version 1)
Quarter: 2015Q2

REPORT INFORMATION
  Report Type: Spontaneous
  Country: US (occurrence: US)
  Receive Date: 20150515
  Receipt Date: 20150515
  Transmission Date: 20150821
  Serious: No
  Sender: FDA-Public Use
  Company Number: US-BIOGENIDEC-2015BI059209

PATIENT
  Age: 47 Year
  Sex: Male
  Weight: 77 kg

DRUGS (8)
  1. ASPIRIN. [Concomitant]
     Active Substance: ASPIRIN
  2. LINSOPRIL [Concomitant]
  3. AMPYRA [Concomitant]
     Active Substance: DALFAMPRIDINE
     Indication: GAIT DISTURBANCE
     Route: 048
     Dates: start: 2013, end: 20131019
  4. TECFIDERA [Suspect]
     Active Substance: DIMETHYL FUMARATE
     Indication: MULTIPLE SCLEROSIS
     Route: 048
  5. CALCIUM [Concomitant]
     Active Substance: CALCIUM
  6. FISH OIL [Concomitant]
     Active Substance: FISH OIL
  7. VITAMIN D [Concomitant]
     Active Substance: CHOLECALCIFEROL
  8. VITAMIN E [Concomitant]
     Active Substance: .ALPHA.-TOCOPHEROL

REACTIONS (9)
  - Tooth infection [Unknown]
  - Mobility decreased [Unknown]
  - Drug effect decreased [Unknown]
  - Toothache [Unknown]
  - Peroneal nerve palsy [Not Recovered/Not Resolved]
  - Gait disturbance [Unknown]
  - Contusion [Unknown]
  - Weight increased [Unknown]
  - Fall [Recovered/Resolved]

NARRATIVE: CASE EVENT DATE: 2013
